FAERS Safety Report 9471561 (Version 2)
Quarter: 2013Q4

REPORT INFORMATION
  Report Type: Spontaneous
  Country: US (occurrence: US)
  Receive Date: 20130822
  Receipt Date: 20131003
  Transmission Date: 20140711
  Serious: Yes (Other)
  Sender: FDA-Public Use
  Company Number: GXBR2013US001568

PATIENT
  Age: 66 Year
  Sex: Male
  Weight: 68.27 kg

DRUGS (4)
  1. PRAVASTATIN SODIUM [Suspect]
     Dosage: 40 MG, QD
     Route: 048
     Dates: start: 2013, end: 201308
  2. ALLOPURINOL [Concomitant]
     Indication: NEPHROLITHIASIS
     Dosage: 300 MG, QD
  3. ATENOLOL [Concomitant]
     Dosage: 50 MG, QD
  4. COUMADIN//WARFARIN SODIUM [Concomitant]
     Indication: ANTICOAGULANT THERAPY
     Dosage: 4 MG, QD

REACTIONS (1)
  - Colitis ulcerative [Recovered/Resolved]
